FAERS Safety Report 16453812 (Version 2)
Quarter: 2019Q3

REPORT INFORMATION
  Report Type: Spontaneous
  Country: US (occurrence: US)
  Receive Date: 20190619
  Receipt Date: 20190730
  Transmission Date: 20191004
  Serious: Yes (Other)
  Sender: FDA-Public Use
  Company Number: US-BAYER-2019-117005

PATIENT
  Age: 28 Year
  Sex: Female
  Weight: 59.86 kg

DRUGS (18)
  1. CLOBETASOL PROPIONATE. [Concomitant]
     Active Substance: CLOBETASOL PROPIONATE
     Dosage: UNK
     Route: 048
     Dates: start: 20190221
  2. MIRENA [Suspect]
     Active Substance: LEVONORGESTREL
     Indication: CONTRACEPTION
     Dosage: 20 MCG/24HR, CONT
     Route: 015
     Dates: start: 20170428, end: 20190604
  3. MIRENA [Suspect]
     Active Substance: LEVONORGESTREL
     Indication: CONTRACEPTION
     Dosage: UNK
     Route: 015
     Dates: start: 20170428
  4. AMOXICILLIN. [Concomitant]
     Active Substance: AMOXICILLIN
     Dosage: 500 MG
     Route: 048
     Dates: start: 20190109
  5. NICOTINE. [Concomitant]
     Active Substance: NICOTINE
     Dosage: 21 MCG/24HR
     Route: 062
     Dates: start: 20090122
  6. OXYCODONE [Concomitant]
     Active Substance: OXYCODONE
     Dosage: 5 MG
     Route: 048
     Dates: start: 20181201
  7. TRETINOIN. [Concomitant]
     Active Substance: TRETINOIN
     Dosage: UNK
     Dates: start: 20190423
  8. AMOXICILLIN + CLAV. POTASSIUM [Concomitant]
     Active Substance: AMOXICILLIN\CLAVULANATE POTASSIUM
     Dosage: UNK MG
     Route: 048
     Dates: start: 20190325
  9. BETA [BETAMETHASONE DIPROPIONATE] [Concomitant]
     Dosage: UNK
     Dates: start: 20180410
  10. MEDROXYPROGESTERONE ACETATE. [Concomitant]
     Active Substance: MEDROXYPROGESTERONE ACETATE
     Dosage: 10 MG
     Dates: start: 20190524
  11. METRONIDAZOLE. [Concomitant]
     Active Substance: METRONIDAZOLE
     Dosage: 0.75 %
     Route: 067
  12. AMOXICILLIN. [Concomitant]
     Active Substance: AMOXICILLIN
     Dosage: 500 MG, TID
     Dates: start: 20190615
  13. FLUTICASONE PROPIONATE. [Concomitant]
     Active Substance: FLUTICASONE PROPIONATE
     Dosage: UNK
     Dates: start: 20190109
  14. IBUPROFEN. [Concomitant]
     Active Substance: IBUPROFEN
     Dosage: 800 MG
     Route: 048
     Dates: start: 20190109
  15. LOSARTAN POTASSIUM. [Concomitant]
     Active Substance: LOSARTAN POTASSIUM
     Dosage: 100 MG
     Route: 048
     Dates: start: 20190510
  16. ACETAMINOPHEN. [Concomitant]
     Active Substance: ACETAMINOPHEN
     Dosage: 325 MG
     Route: 048
     Dates: start: 20181201
  17. METRONIDAZOLE. [Concomitant]
     Active Substance: METRONIDAZOLE
     Dosage: 0.75 %
     Route: 067
     Dates: start: 20190515
  18. FLUCONAZOLE. [Concomitant]
     Active Substance: FLUCONAZOLE
     Dosage: 150 MG
     Route: 048
     Dates: start: 20190311

REACTIONS (5)
  - Menorrhagia [None]
  - Vaginal haemorrhage [None]
  - Device dislocation [Recovered/Resolved]
  - Uterine haemorrhage [None]
  - Menstruation irregular [None]

NARRATIVE: CASE EVENT DATE: 20170428
